FAERS Safety Report 24711163 (Version 1)
Quarter: 2024Q4

REPORT INFORMATION
  Report Type: Spontaneous
  Country: DE (occurrence: DE)
  Receive Date: 20241209
  Receipt Date: 20241209
  Transmission Date: 20250114
  Serious: Yes (Life-Threatening, Hospitalization, Other)
  Sender: Steriscience PTE
  Company Number: DE-STERISCIENCE B.V.-2024-ST-002060

PATIENT
  Age: 62 Year
  Sex: Male
  Weight: 75 kg

DRUGS (12)
  1. ROCURONIUM BROMIDE [Suspect]
     Active Substance: ROCURONIUM BROMIDE
     Indication: Induction of anaesthesia
     Dosage: 50 MILLIGRAM
  2. SUFENTANIL [Suspect]
     Active Substance: SUFENTANIL
     Indication: Induction of anaesthesia
     Dosage: 30 MICROGRAM
  3. PROPOFOL [Suspect]
     Active Substance: PROPOFOL
     Indication: Induction of anaesthesia
     Dosage: 400 MILLIGRAM
  4. PROPOFOL [Suspect]
     Active Substance: PROPOFOL
     Dosage: REINSTITUTED
     Route: 065
  5. SEVOFLURANE [Suspect]
     Active Substance: SEVOFLURANE
     Indication: Maintenance of anaesthesia
     Dosage: UNK
  6. REMIFENTANIL [Suspect]
     Active Substance: REMIFENTANIL
     Indication: Maintenance of anaesthesia
     Dosage: 0.3 MICROGRAM/KILOGRAM, QMINUTE
  7. REMIFENTANIL [Suspect]
     Active Substance: REMIFENTANIL
     Dosage: REINSTITUTED
     Route: 065
  8. PREDNISOLONE [Concomitant]
     Active Substance: PREDNISOLONE
     Indication: Hypersensitivity
     Dosage: 250 MILLIGRAM
     Route: 065
  9. DIMETHINDENE [Concomitant]
     Active Substance: DIMETHINDENE
     Indication: Hypersensitivity
     Dosage: 8 MILLIGRAM
     Route: 065
  10. SUGAMMADEX [Concomitant]
     Active Substance: SUGAMMADEX
     Indication: Neuromuscular blockade reversal
     Dosage: UNK
  11. MIDAZOLAM [Concomitant]
     Active Substance: MIDAZOLAM
     Indication: Product used for unknown indication
     Dosage: UNK
     Route: 065
  12. KETAMINE [Concomitant]
     Active Substance: KETAMINE
     Indication: Product used for unknown indication
     Dosage: UNK
     Route: 065

REACTIONS (1)
  - Negative pressure pulmonary oedema [None]
